FAERS Safety Report 9752026 (Version 1)
Quarter: 2013Q4

REPORT INFORMATION
  Report Type: Spontaneous
  Country: US (occurrence: None)
  Receive Date: 20131211
  Receipt Date: 20131211
  Transmission Date: 20140711
  Serious: No
  Sender: FDA-Public Use
  Company Number: None

PATIENT
  Age: 71 Year
  Sex: Female

DRUGS (18)
  1. XELJANZ [Suspect]
     Indication: RHEUMATOID ARTHRITIS
     Dosage: 1 TABLET BID ORAL
     Route: 048
  2. AMBIEN [Concomitant]
  3. CALTRATE [Concomitant]
  4. CENTRUM SILVER [Concomitant]
  5. COLACE [Concomitant]
  6. EFFEXOR XR [Concomitant]
  7. FLEXERIL [Concomitant]
  8. FOLIC ACID [Concomitant]
  9. HYDROCHLORTHIAZIDE [Concomitant]
  10. HUMULIN U-100 PEN [Concomitant]
  11. NEURONTIN [Concomitant]
  12. NEXIUM [Concomitant]
  13. QUINAPRIL [Concomitant]
  14. SINGULAIR [Concomitant]
  15. LIPITOR [Concomitant]
  16. TRICOR [Concomitant]
  17. TYLENOL [Concomitant]
  18. FELODIPINE ER [Concomitant]

REACTIONS (2)
  - Local swelling [None]
  - No therapeutic response [None]
